FAERS Safety Report 25064135 (Version 1)
Quarter: 2025Q1

REPORT INFORMATION
  Report Type: Report from Study
  Country: US (occurrence: US)
  Receive Date: 20250311
  Receipt Date: 20250311
  Transmission Date: 20250408
  Serious: Yes (Other)
  Sender: UCB
  Company Number: US-UCBSA-2025013747

PATIENT
  Age: 74 Year
  Sex: Female

DRUGS (1)
  1. BRIVARACETAM [Suspect]
     Active Substance: BRIVARACETAM
     Indication: Seizure
     Dosage: 50 MILLIGRAM, 2X/DAY (BID)
     Dates: start: 2024

REACTIONS (2)
  - Arthropathy [Not Recovered/Not Resolved]
  - Knee operation [Not Recovered/Not Resolved]

NARRATIVE: CASE EVENT DATE: 20250210
